FAERS Safety Report 10220238 (Version 3)
Quarter: 2016Q2

REPORT INFORMATION
  Report Type: Report from Study
  Country: US (occurrence: US)
  Receive Date: 20140606
  Receipt Date: 20160418
  Transmission Date: 20160815
  Serious: Yes (Death)
  Sender: FDA-Public Use
  Company Number: US-ROCHE-1390850

PATIENT
  Age: 95 Year
  Sex: Male

DRUGS (4)
  1. FUROSEMIDE. [Concomitant]
     Active Substance: FUROSEMIDE
  2. WARFARIN [Concomitant]
     Active Substance: WARFARIN
  3. LUCENTIS [Suspect]
     Active Substance: RANIBIZUMAB
     Route: 050
  4. LUCENTIS [Suspect]
     Active Substance: RANIBIZUMAB
     Indication: NEOVASCULAR AGE-RELATED MACULAR DEGENERATION
     Dosage: RIGHT EYE (0.05 ML)
     Route: 050
     Dates: start: 20110207, end: 20131023

REACTIONS (1)
  - Death [Fatal]

NARRATIVE: CASE EVENT DATE: 20131228
